FAERS Safety Report 22325483 (Version 1)
Quarter: 2023Q2

REPORT INFORMATION
  Report Type: Spontaneous
  Country: US (occurrence: None)
  Receive Date: 20230516
  Receipt Date: 20230516
  Transmission Date: 20230721
  Serious: Yes (Hospitalization)
  Sender: FDA-Public Use
  Company Number: 2023A110437

PATIENT
  Age: 32 Year
  Sex: Male

DRUGS (5)
  1. FARXIGA [Suspect]
     Active Substance: DAPAGLIFLOZIN PROPANEDIOL
     Indication: Diabetes mellitus
     Route: 048
  2. CIALIS [Concomitant]
     Active Substance: TADALAFIL
  3. SIMVASTATIN [Concomitant]
     Active Substance: SIMVASTATIN
  4. LISINIPRIL/HCTZ [Concomitant]
  5. PROTONIX [Concomitant]
     Active Substance: PANTOPRAZOLE SODIUM

REACTIONS (1)
  - Diabetic ketoacidosis [Recovered/Resolved]
